FAERS Safety Report 21171558 (Version 1)
Quarter: 2022Q3

REPORT INFORMATION
  Report Type: Spontaneous
  Country: IT (occurrence: IT)
  Receive Date: 20220804
  Receipt Date: 20220804
  Transmission Date: 20221026
  Serious: Yes (Other)
  Sender: FDA-Public Use
  Company Number: None

PATIENT
  Age: 52 Year
  Sex: Female
  Weight: 80 kg

DRUGS (1)
  1. AMOXICILLIN\CLAVULANATE POTASSIUM [Suspect]
     Active Substance: AMOXICILLIN\CLAVULANATE POTASSIUM
     Indication: Antibiotic prophylaxis
     Dosage: UNK
     Route: 048
     Dates: start: 20220712, end: 20220719

REACTIONS (8)
  - Dysentery [Not Recovered/Not Resolved]
  - Oral mucosal blistering [Not Recovered/Not Resolved]
  - Pyrexia [Recovering/Resolving]
  - Vomiting [Recovering/Resolving]
  - Genital rash [Not Recovered/Not Resolved]
  - Rash vesicular [Not Recovered/Not Resolved]
  - Rash pruritic [Not Recovered/Not Resolved]
  - Dizziness [Recovered/Resolved]

NARRATIVE: CASE EVENT DATE: 20220715
